FAERS Safety Report 13895483 (Version 1)
Quarter: 2017Q3

REPORT INFORMATION
  Report Type: Spontaneous
  Country: US (occurrence: US)
  Receive Date: 20170823
  Receipt Date: 20170823
  Transmission Date: 20171127
  Serious: No
  Sender: FDA-Public Use
  Company Number: US-PFIZER INC-2017357046

PATIENT
  Age: 52 Year
  Sex: Female
  Weight: 61.23 kg

DRUGS (1)
  1. PREMARIN [Suspect]
     Active Substance: ESTROGENS, CONJUGATED
     Indication: INCONTINENCE
     Dosage: 0.5 G, 2X/WEEK
     Route: 067
     Dates: start: 2016

REACTIONS (5)
  - Product quality issue [Unknown]
  - Vulvovaginal mycotic infection [Recovered/Resolved]
  - Dysuria [Recovered/Resolved]
  - Product use in unapproved indication [Unknown]
  - Bacterial vaginosis [Recovered/Resolved]

NARRATIVE: CASE EVENT DATE: 201708
